FAERS Safety Report 4950872-7 (Version None)
Quarter: 2006Q1

REPORT INFORMATION
  Report Type: 
  Country: None (occurrence: None)
  Receive Date: 20060322
  Receipt Date: 20060310
  Transmission Date: 20060701
  Serious: Yes (Death, Hospitalization, Disabling)
  Sender: FDA-Public Use
  Company Number: JP-BRISTOL-MYERS SQUIBB COMPANY-13319777

PATIENT
  Age: 58 Year
  Sex: Male

DRUGS (9)
  1. EFAVIRENZ [Suspect]
     Indication: HIV INFECTION
     Dosage: THERAPY STOPPED 09-JUL-2002, RESTARTED 17-SEP-2002, STOPPED 17-JUL-2003, RESTARTED 19-FEB-2004
     Route: 048
     Dates: start: 20011025, end: 20040516
  2. VIDEX EC [Suspect]
     Indication: HIV INFECTION
     Route: 048
     Dates: start: 20011025, end: 20020709
  3. ZERIT [Suspect]
     Indication: HIV INFECTION
     Dates: start: 20011127, end: 20020709
  4. EPIVIR [Suspect]
     Indication: HIV INFECTION
     Route: 048
     Dates: start: 20040219, end: 20040516
  5. KALETRA [Suspect]
     Indication: HIV INFECTION
     Dosage: THERAPY STOPPED 17-JUL-2003, RESTARTED AT REDUCED DOSE 6 DOSAGE FORMS DAILY ON 19-FEB-2004
     Route: 048
     Dates: start: 20020917, end: 20040516
  6. PREDONINE [Suspect]
     Indication: CYTOMEGALOVIRUS INFECTION
     Route: 048
     Dates: start: 20010928, end: 20040522
  7. DENOSINE [Concomitant]
     Dates: start: 20011202, end: 20040520
  8. COTRIM [Concomitant]
     Dates: start: 20020402, end: 20040526
  9. ABACAVIR [Concomitant]
     Dates: start: 20020917

REACTIONS (17)
  - ADRENAL INSUFFICIENCY [None]
  - BLOOD PRESSURE DECREASED [None]
  - BLOOD TRIGLYCERIDES INCREASED [None]
  - BONE MARROW FAILURE [None]
  - CHOKING SENSATION [None]
  - CYTOMEGALOVIRUS CHORIORETINITIS [None]
  - DILATATION VENTRICULAR [None]
  - HYPERLIPIDAEMIA [None]
  - HYPOKALAEMIA [None]
  - INSOMNIA [None]
  - LACTIC ACIDOSIS [None]
  - MALAISE [None]
  - OESOPHAGEAL NEOPLASM [None]
  - PNEUMONIA [None]
  - RENAL ATROPHY [None]
  - RESTLESSNESS [None]
  - VOMITING [None]
